FAERS Safety Report 5047197-0 (Version None)
Quarter: 2006Q3

REPORT INFORMATION
  Report Type: 
  Country: None (occurrence: None)
  Receive Date: 20060703
  Receipt Date: 20060621
  Transmission Date: 20061208
  Serious: Yes (Hospitalization)
  Sender: FDA-Public Use
  Company Number: US017636

PATIENT
  Age: 84 Year
  Sex: Female

DRUGS (8)
  1. TRISENOX [Suspect]
     Indication: ACUTE PROMYELOCYTIC LEUKAEMIA
     Dosage: 4.1 MG QD, INTRAVENOUS DRIP
     Route: 041
     Dates: start: 20060228, end: 20060320
  2. TRISENOX [Suspect]
     Indication: ACUTE PROMYELOCYTIC LEUKAEMIA
     Dosage: 3.94 MG QD INTRAVENOUS DRIP
     Route: 041
     Dates: start: 20060411, end: 20060511
  3. FUROSEMIDE [Suspect]
     Dosage: 40 MG QD ORAL
     Route: 048
     Dates: start: 20060221, end: 20060511
  4. MEXILETINE HYDROCHLORIDE [Concomitant]
  5. NIFEDIPINE [Concomitant]
  6. L-ASPARTATE POTASSIUM [Concomitant]
  7. NIZATIDINE [Concomitant]
  8. INSULIN [Concomitant]

REACTIONS (10)
  - C-REACTIVE PROTEIN INCREASED [None]
  - DISSEMINATED INTRAVASCULAR COAGULATION [None]
  - HAEMOGLOBIN DECREASED [None]
  - HYPOKALAEMIA [None]
  - MALIGNANT NEOPLASM PROGRESSION [None]
  - PLATELET COUNT DECREASED [None]
  - RENAL FAILURE [None]
  - RESPIRATORY FAILURE [None]
  - THERAPY NON-RESPONDER [None]
  - WHITE BLOOD CELL COUNT DECREASED [None]
